FAERS Safety Report 25585809 (Version 1)
Quarter: 2025Q3

REPORT INFORMATION
  Report Type: Spontaneous
  Country: US (occurrence: None)
  Receive Date: 20250718
  Receipt Date: 20250718
  Transmission Date: 20251020
  Serious: Yes (Other)
  Sender: FDA-CTU
  Company Number: None

PATIENT
  Age: 35 Year
  Sex: Female
  Weight: 73.35 kg

DRUGS (2)
  1. CEPHALEXIN [Suspect]
     Active Substance: CEPHALEXIN
     Indication: Urinary tract infection
     Dates: start: 20250714, end: 20250718
  2. NAPROXEN [Concomitant]
     Active Substance: NAPROXEN

REACTIONS (12)
  - Product complaint [None]
  - Anxiety [None]
  - Anger [None]
  - Brain fog [None]
  - Panic attack [None]
  - Agitation [None]
  - Fatigue [None]
  - Depression [None]
  - Suicidal ideation [None]
  - Feeling of despair [None]
  - Crying [None]
  - Mania [None]

NARRATIVE: CASE EVENT DATE: 20250718
